FAERS Safety Report 7308706-1 (Version None)
Quarter: 2011Q1

REPORT INFORMATION
  Report Type: 
  Country: None (occurrence: None)
  Receive Date: 20110223
  Receipt Date: 20110211
  Transmission Date: 20110831
  Serious: Yes (Other)
  Sender: FDA-Public Use
  Company Number: PHHY2011NL12328

PATIENT
  Sex: Male

DRUGS (2)
  1. ZOMETA [Suspect]
     Dosage: 4 MG/5ML PER 28 ADYS
     Route: 042
     Dates: start: 20110117
  2. ZOMETA [Suspect]
     Indication: PROSTATE CANCER METASTATIC
     Dosage: 4 MG/5ML PER 28 ADYS
     Route: 042
     Dates: start: 20101228

REACTIONS (2)
  - OSTEITIS [None]
  - PAIN IN JAW [None]
